FAERS Safety Report 7244514-8 (Version None)
Quarter: 2011Q1

REPORT INFORMATION
  Report Type: 
  Country: None (occurrence: None)
  Receive Date: 20110125
  Receipt Date: 20110111
  Transmission Date: 20110831
  Serious: Yes (Other)
  Sender: FDA-Public Use
  Company Number: GB-WATSON-2010-14771

PATIENT
  Age: 71 Year
  Sex: Male

DRUGS (9)
  1. SIMVASTATIN [Suspect]
     Indication: HYPERCHOLESTEROLAEMIA
     Dosage: 28 X 20MG TABLETS
     Route: 048
  2. ASPIRIN [Concomitant]
     Indication: TRANSIENT GLOBAL AMNESIA
     Dosage: 75 MG, DAILY
     Route: 048
     Dates: start: 20050715
  3. HYPNOTICS AND SEDATIVES [Concomitant]
     Indication: PRODUCT USED FOR UNKNOWN INDICATION
  4. ACETAMINOPHEN [Concomitant]
     Indication: PRODUCT USED FOR UNKNOWN INDICATION
     Dosage: 1 DF, QID
     Route: 048
     Dates: start: 20021015, end: 20060111
  5. ACETAMINOPHEN W/ PROPOXYPHENE HCL [Concomitant]
     Indication: PRODUCT USED FOR UNKNOWN INDICATION
     Dosage: 4 DF,
     Route: 048
     Dates: start: 20021015, end: 20060111
  6. DOTHIEPIN                          /00160402/ [Concomitant]
     Indication: PRODUCT USED FOR UNKNOWN INDICATION
     Dosage: UNK MG, DAILY
     Route: 048
     Dates: start: 20050314, end: 20060111
  7. ASPIRIN [Concomitant]
     Indication: TRANSIENT ISCHAEMIC ATTACK
  8. SIMVASTATIN [Suspect]
     Dosage: 10 MG, DAILY
     Route: 048
     Dates: start: 20031212, end: 20060322
  9. SIMVASTATIN [Suspect]
     Dosage: 10 MG, DAILY
     Route: 048
     Dates: start: 20020210, end: 20030121

REACTIONS (6)
  - ERECTILE DYSFUNCTION [None]
  - ALOPECIA [None]
  - SUICIDE ATTEMPT [None]
  - AMNESIA [None]
  - INTENTIONAL OVERDOSE [None]
  - MEMORY IMPAIRMENT [None]
